FAERS Safety Report 5599087-2 (Version None)
Quarter: 2008Q1

REPORT INFORMATION
  Report Type: 
  Country: None (occurrence: None)
  Receive Date: 20080122
  Receipt Date: 20080116
  Transmission Date: 20080703
  Serious: Yes (Hospitalization)
  Sender: FDA-Public Use
  Company Number: GB-BOEHRINGER INGELHEIM PHARMACEUTICALS, INC.-2007-DE-06503GD

PATIENT
  Age: 72 Year
  Sex: Male

DRUGS (4)
  1. TIOTROPIUM-BROMIDE [Suspect]
     Indication: CHRONIC OBSTRUCTIVE PULMONARY DISEASE
     Route: 055
     Dates: start: 20031124
  2. DILTIAZEM HYDROCHLORIDE [Suspect]
     Indication: MYOCARDIAL ISCHAEMIA
     Dates: end: 20040720
  3. PREDUCTAL MR [Suspect]
     Indication: MYOCARDIAL ISCHAEMIA
     Dates: start: 20040518, end: 20040720
  4. TERTENSIF [Concomitant]

REACTIONS (7)
  - ABDOMINAL PAIN [None]
  - ARRHYTHMIA [None]
  - CHRONIC OBSTRUCTIVE PULMONARY DISEASE [None]
  - CONDITION AGGRAVATED [None]
  - GASTRIC ULCER [None]
  - MYOCARDIAL INFARCTION [None]
  - PERITONITIS [None]
